FAERS Safety Report 4838254-X (Version None)
Quarter: 2005Q4

REPORT INFORMATION
  Report Type: 
  Country: None (occurrence: None)
  Receive Date: 20051128
  Receipt Date: 20051004
  Transmission Date: 20060501
  Serious: Yes (Other)
  Sender: FDA-Public Use
  Company Number: US-MERCK-0510USA03140

PATIENT
  Sex: Female
  Weight: 95 kg

DRUGS (1)
  1. VIOXX [Suspect]
     Indication: ARTHRITIS
     Route: 048

REACTIONS (5)
  - CARDIOMEGALY [None]
  - CHEST PAIN [None]
  - MYOCARDIAL INFARCTION [None]
  - RENAL ATROPHY [None]
  - STENT PLACEMENT [None]
